FAERS Safety Report 8619994-3 (Version None)
Quarter: 2012Q3

REPORT INFORMATION
  Report Type: 
  Country: None (occurrence: None)
  Receive Date: 20120817
  Receipt Date: 20120817
  Transmission Date: 20120928
  Serious: Yes (Life-Threatening, Disabling, Other)
  Sender: FDA-Public Use
  Company Number: None

PATIENT
  Sex: Male
  Weight: 97.5234 kg

DRUGS (2)
  1. FINASTERIDE [Suspect]
     Indication: PROSTATOMEGALY
     Dates: start: 20100401, end: 20101231
  2. FINASTERIDE [Concomitant]

REACTIONS (1)
  - PROSTATE CANCER [None]
